FAERS Safety Report 4510112-X (Version None)
Quarter: 2004Q4

REPORT INFORMATION
  Report Type: 
  Country: None (occurrence: None)
  Receive Date: 20041124
  Receipt Date: 20041117
  Transmission Date: 20050328
  Serious: Yes (Hospitalization)
  Sender: FDA-Public Use
  Company Number: US-JNJFOC-20041104572

PATIENT
  Sex: Female
  Weight: 102.06 kg

DRUGS (6)
  1. REMICADE [Suspect]
     Route: 042
  2. REMICADE [Suspect]
     Route: 042
  3. NEURONTIN [Concomitant]
  4. SULFASALIZINE [Concomitant]
  5. OXYCONTIN [Concomitant]
     Indication: PAIN
  6. CLONIDINE [Concomitant]
     Indication: BLOOD PRESSURE

REACTIONS (3)
  - BLOOD TEST ABNORMAL [None]
  - FOOT OPERATION [None]
  - KNEE ARTHROPLASTY [None]
